FAERS Safety Report 5050019-5 (Version None)
Quarter: 2006Q3

REPORT INFORMATION
  Report Type: 
  Country: None (occurrence: None)
  Receive Date: 20060713
  Receipt Date: 20060706
  Transmission Date: 20061208
  Serious: Yes (Life-Threatening, Hospitalization)
  Sender: FDA-Public Use
  Company Number: FR-SANOFI-SYNTHELABO-A02200601787

PATIENT
  Age: 80 Year
  Sex: Male

DRUGS (3)
  1. LEUCOVORIN CALCIUM [Suspect]
     Indication: COLON CANCER
     Route: 042
  2. FLUOROURACIL [Suspect]
     Indication: COLON CANCER
     Route: 042
  3. ELOXATIN [Suspect]
     Indication: COLON CANCER
     Route: 042

REACTIONS (2)
  - COMA [None]
  - CONFUSIONAL STATE [None]
